FAERS Safety Report 17808056 (Version 1)
Quarter: 2020Q2

REPORT INFORMATION
  Report Type: Spontaneous
  Country: CN (occurrence: CN)
  Receive Date: 20200520
  Receipt Date: 20200520
  Transmission Date: 20200714
  Serious: Yes (Other)
  Sender: FDA-Public Use
  Company Number: CN-PFIZER INC-2020196289

PATIENT
  Sex: Female

DRUGS (1)
  1. TAZOCIN [Suspect]
     Active Substance: PIPERACILLIN SODIUM\TAZOBACTAM SODIUM
     Dosage: UNK

REACTIONS (8)
  - Drug hypersensitivity [Unknown]
  - Body temperature increased [Unknown]
  - Wheezing [Unknown]
  - Pallor [Unknown]
  - Heart rate increased [Unknown]
  - Temperature intolerance [Unknown]
  - Chills [Unknown]
  - Laryngeal oedema [Unknown]

NARRATIVE: CASE EVENT DATE: 20200512
